FAERS Safety Report 20597262 (Version 4)
Quarter: 2022Q2

REPORT INFORMATION
  Report Type: Report from Study
  Country: LB (occurrence: LB)
  Receive Date: 20220315
  Receipt Date: 20220513
  Transmission Date: 20220721
  Serious: Yes (Hospitalization)
  Sender: FDA-Public Use
  Company Number: LB-ABBVIE-22K-093-4314045-00

PATIENT
  Age: 58 Year
  Sex: Male
  Weight: 76 kg

DRUGS (4)
  1. RINVOQ [Suspect]
     Active Substance: UPADACITINIB
     Indication: Rheumatoid arthritis
     Route: 048
     Dates: start: 20220212, end: 20220308
  2. RINVOQ [Suspect]
     Active Substance: UPADACITINIB
     Route: 048
     Dates: start: 2022, end: 202205
  3. CORTISONE [Concomitant]
     Active Substance: CORTISONE
     Indication: Product used for unknown indication
     Dates: start: 2016
  4. XELJANZ [Concomitant]
     Active Substance: TOFACITINIB CITRATE
     Indication: Product used for unknown indication
     Dates: start: 202205

REACTIONS (9)
  - Syncope [Recovered/Resolved]
  - Oxygen saturation decreased [Recovered/Resolved]
  - Spinal fracture [Not Recovered/Not Resolved]
  - Oxygen saturation decreased [Recovered/Resolved]
  - Immunodeficiency [Not Recovered/Not Resolved]
  - Platelet count decreased [Not Recovered/Not Resolved]
  - White blood cell count increased [Not Recovered/Not Resolved]
  - C-reactive protein increased [Recovered/Resolved]
  - C-reactive protein abnormal [Not Recovered/Not Resolved]

NARRATIVE: CASE EVENT DATE: 20220308
